FAERS Safety Report 13102249 (Version 2)
Quarter: 2017Q1

REPORT INFORMATION
  Report Type: Spontaneous
  Country: CN (occurrence: CN)
  Receive Date: 20170110
  Receipt Date: 20170127
  Transmission Date: 20170428
  Serious: Yes (Hospitalization, Other)
  Sender: FDA-Public Use
  Company Number: CN-PFIZER INC-2017008250

PATIENT
  Age: 35 Year
  Sex: Female
  Weight: 56 kg

DRUGS (5)
  1. CYTARABINE. [Suspect]
     Active Substance: CYTARABINE
     Dosage: 100 MG, 1X/DAY
     Route: 042
     Dates: start: 20161007, end: 20161010
  2. CYTARABINE. [Suspect]
     Active Substance: CYTARABINE
     Indication: ACUTE LYMPHOCYTIC LEUKAEMIA
     Dosage: 100 MG, 1X/DAY
     Route: 042
     Dates: start: 20160930, end: 20161002
  3. SODIUM CHLORIDE INJECTION [Suspect]
     Active Substance: SODIUM CHLORIDE
     Indication: VEHICLE SOLUTION USE
     Dosage: 250 MG, 1X/DAY
     Route: 042
     Dates: start: 20161007, end: 20161010
  4. SODIUM CHLORIDE INJECTION [Suspect]
     Active Substance: SODIUM CHLORIDE
     Dosage: 250 MG, 1X/DAY
     Route: 042
     Dates: start: 20161008, end: 20161008
  5. CYCLOPHOSPHAMIDE INJECTION [Suspect]
     Active Substance: CYCLOPHOSPHAMIDE
     Indication: ACUTE LYMPHOCYTIC LEUKAEMIA
     Dosage: 1200 MG, 1X/DAY
     Route: 042
     Dates: start: 20161008, end: 20161008

REACTIONS (1)
  - Pancytopenia [Recovering/Resolving]

NARRATIVE: CASE EVENT DATE: 20161010
